FAERS Safety Report 17773612 (Version 1)
Quarter: 2020Q2

REPORT INFORMATION
  Report Type: Report from Study
  Country: US (occurrence: US)
  Receive Date: 20200513
  Receipt Date: 20200513
  Transmission Date: 20200714
  Serious: Yes (Hospitalization)
  Sender: FDA-Public Use
  Company Number: US-ROCHE-2597567

PATIENT
  Age: 64 Year
  Sex: Male

DRUGS (16)
  1. RITUXIMAB. [Suspect]
     Active Substance: RITUXIMAB
     Indication: ACUTE LYMPHOCYTIC LEUKAEMIA
     Dosage: ON DAY 2 AND DAY 8 OF CYCLES 1 AND 3;
     Route: 041
  2. MESNA. [Suspect]
     Active Substance: MESNA
     Indication: ACUTE LYMPHOCYTIC LEUKAEMIA
     Route: 065
  3. CYCLOPHOSPHAMIDE. [Suspect]
     Active Substance: CYCLOPHOSPHAMIDE
     Indication: ACUTE LYMPHOCYTIC LEUKAEMIA
     Route: 065
  4. FILGRASTIM [Suspect]
     Active Substance: FILGRASTIM
     Dosage: REGIMEN B:PEG-FILGRASTIM 6 MG SUBQ (OR FILGRASTIM 5-10 MCG/KG DAILY) ON DAY 4
     Route: 058
  5. METHOTREXATE SODIUM. [Suspect]
     Active Substance: METHOTREXATE SODIUM
     Indication: ACUTE LYMPHOCYTIC LEUKAEMIA
     Route: 042
  6. RITUXIMAB. [Suspect]
     Active Substance: RITUXIMAB
     Dosage: REGIMEN B: ON DAY 2 AND DAY 8 OF CYCLES 2 AND 4
     Route: 041
  7. INOTUZUMAB OZOGAMICIN [Suspect]
     Active Substance: INOTUZUMAB OZOGAMICIN
     Indication: ACUTE LYMPHOCYTIC LEUKAEMIA
     Route: 042
     Dates: start: 20191011
  8. CYTARABINE. [Suspect]
     Active Substance: CYTARABINE
     Indication: ACUTE LYMPHOCYTIC LEUKAEMIA
     Dosage: 0.5 G/M2
     Route: 065
  9. METHOTREXATE SODIUM. [Suspect]
     Active Substance: METHOTREXATE SODIUM
     Dosage: REGIMEN B: CONTINUOUS INFUSION OVER 22?HOURS ON DAY 1,
     Route: 042
  10. BLINATUMOMAB [Suspect]
     Active Substance: BLINATUMOMAB
     Dosage: CONTINUOUS INFUSION DAYS 4-29 (CYCLE 5 ONLY)
     Route: 065
  11. FILGRASTIM [Suspect]
     Active Substance: FILGRASTIM
     Indication: ACUTE LYMPHOCYTIC LEUKAEMIA
     Dosage: 5-10 MCG/KG
     Route: 058
  12. VINCRISTINE SULFATE. [Suspect]
     Active Substance: VINCRISTINE SULFATE
     Indication: ACUTE LYMPHOCYTIC LEUKAEMIA
     Route: 065
  13. INOTUZUMAB OZOGAMICIN [Suspect]
     Active Substance: INOTUZUMAB OZOGAMICIN
     Dosage: REGIMEN B:: ON DAYS 2 AND 8 OF CYCLES 2 AND 4
     Route: 042
  14. DEXAMETHASONE. [Suspect]
     Active Substance: DEXAMETHASONE
     Indication: ACUTE LYMPHOCYTIC LEUKAEMIA
     Route: 065
  15. BLINATUMOMAB [Suspect]
     Active Substance: BLINATUMOMAB
     Dosage: CONTINUOUS INFUSION DAYS 1-29 (CYCLES 6, 11 AND 12
     Route: 065
  16. BLINATUMOMAB [Suspect]
     Active Substance: BLINATUMOMAB
     Indication: ACUTE LYMPHOCYTIC LEUKAEMIA
     Route: 065

REACTIONS (1)
  - Aphasia [Recovered/Resolved]

NARRATIVE: CASE EVENT DATE: 20200224
